FAERS Safety Report 23718464 (Version 1)
Quarter: 2024Q2

REPORT INFORMATION
  Report Type: Spontaneous
  Country: GB (occurrence: GB)
  Receive Date: 20240408
  Receipt Date: 20240408
  Transmission Date: 20240715
  Serious: Yes (Other)
  Sender: FDA-Public Use
  Company Number: GB-SUN PHARMACEUTICAL INDUSTRIES LTD-2024RR-441002

PATIENT
  Age: 74 Year
  Sex: Female
  Weight: 76 kg

DRUGS (4)
  1. ATORVASTATIN [Suspect]
     Active Substance: ATORVASTATIN
     Indication: Product used for unknown indication
     Dosage: ONE TO BE TAKEN EACH DAY
     Route: 065
     Dates: start: 20240226, end: 20240320
  2. ATORVASTATIN [Concomitant]
     Active Substance: ATORVASTATIN
     Indication: Product used for unknown indication
     Dosage: ONE TO BE TAKEN EACH DAY
     Route: 065
     Dates: start: 20240226, end: 20240320
  3. CLARITHROMYCIN [Concomitant]
     Active Substance: CLARITHROMYCIN
     Indication: Product used for unknown indication
     Dosage: ONE TO BE TAKEN TWICE A DAY
     Route: 065
     Dates: start: 20231229, end: 20240127
  4. DOXYCYCLINE [Concomitant]
     Active Substance: DOXYCYCLINE
     Indication: Product used for unknown indication
     Dosage: TWO TO BE TAKEN ON THE FIRST DAY THEN ONE TO BE TAKEN EACH DAY
     Route: 065
     Dates: start: 20231228, end: 20240209

REACTIONS (1)
  - Diarrhoea haemorrhagic [Recovered/Resolved]

NARRATIVE: CASE EVENT DATE: 20240311
